FAERS Safety Report 9207720 (Version 4)
Quarter: 2013Q2

REPORT INFORMATION
  Report Type: Report from Study
  Country: JP (occurrence: JP)
  Receive Date: 20130403
  Receipt Date: 20130605
  Transmission Date: 20140414
  Serious: Yes (Hospitalization)
  Sender: FDA-Public Use
  Company Number: JP-UCBSA-082111

PATIENT
  Age: 47 Year
  Sex: Female
  Weight: 64.2 kg

DRUGS (6)
  1. LEVETIRACETAM [Suspect]
     Indication: GRAND MAL CONVULSION
     Route: 048
     Dates: start: 20110915
  2. LEVETIRACETAM [Suspect]
     Indication: GRAND MAL CONVULSION
     Route: 048
     Dates: start: 20110818, end: 20110915
  3. TOPIRAMATE [Concomitant]
     Indication: EPILEPSY
     Dosage: 100 MG IN MORNING AND 150 MG AT NIGHT
     Route: 048
     Dates: start: 20100409
  4. SODIUM VALPROATE [Concomitant]
     Indication: EPILEPSY
     Route: 048
     Dates: start: 20100903
  5. FLUNITRAZEPAM [Concomitant]
     Indication: SLEEP DISORDER
     Route: 048
     Dates: start: 20100730
  6. FAMOTIDINE [Concomitant]
     Indication: GASTRITIS
     Route: 048
     Dates: start: 20100212

REACTIONS (1)
  - Adenoma benign [Recovered/Resolved]
